FAERS Safety Report 5612040-5 (Version None)
Quarter: 2008Q1

REPORT INFORMATION
  Report Type: 
  Country: None (occurrence: None)
  Receive Date: 20080204
  Receipt Date: 20080129
  Transmission Date: 20080703
  Serious: Yes (Congenital Anomaly)
  Sender: FDA-Public Use
  Company Number: DK-BAYER-200717101GPV

PATIENT
  Sex: Male

DRUGS (1)
  1. CLOTRIMAZOLE [Suspect]
     Indication: VAGINAL CANDIDIASIS
     Route: 064
     Dates: start: 20070818, end: 20070101

REACTIONS (1)
  - LIMB REDUCTION DEFECT [None]
